FAERS Safety Report 8258305-2 (Version None)
Quarter: 2012Q2

REPORT INFORMATION
  Report Type: 
  Country: None (occurrence: None)
  Receive Date: 20120404
  Receipt Date: 20120328
  Transmission Date: 20120825
  Serious: Yes (Other)
  Sender: FDA-Public Use
  Company Number: US-AMGEN-USASP2012019960

PATIENT
  Age: 67 Year
  Sex: Female

DRUGS (1)
  1. ENBREL [Suspect]
     Indication: RHEUMATOID ARTHRITIS
     Dosage: 50 MG, QWK
     Dates: start: 20111001

REACTIONS (9)
  - NAUSEA [None]
  - DRY SKIN [None]
  - SKIN DISCOLOURATION [None]
  - ARTHRALGIA [None]
  - PHYSICAL DISABILITY [None]
  - VOMITING [None]
  - FURUNCLE [None]
  - ABASIA [None]
  - MOUTH ULCERATION [None]
